FAERS Safety Report 12233119 (Version 1)
Quarter: 2016Q2

REPORT INFORMATION
  Report Type: Spontaneous
  Country: US (occurrence: US)
  Receive Date: 20160404
  Receipt Date: 20160404
  Transmission Date: 20160815
  Serious: Yes (Other)
  Sender: FDA-Public Use
  Company Number: US-ROCHE-1734518

PATIENT
  Age: 80 Year
  Sex: Male

DRUGS (1)
  1. ACTEMRA [Suspect]
     Active Substance: TOCILIZUMAB
     Indication: RHEUMATOID ARTHRITIS
     Route: 058
     Dates: start: 20151217

REACTIONS (9)
  - Osteoporosis [Not Recovered/Not Resolved]
  - Red blood cell count decreased [Unknown]
  - Mass [Not Recovered/Not Resolved]
  - Lymphadenopathy [Not Recovered/Not Resolved]
  - Nerve compression [Not Recovered/Not Resolved]
  - Lymphocyte count decreased [Unknown]
  - Red cell distribution width increased [Unknown]
  - Hypoaesthesia [Not Recovered/Not Resolved]
  - Mean cell volume increased [Unknown]

NARRATIVE: CASE EVENT DATE: 20160309
